FAERS Safety Report 11400050 (Version 9)
Quarter: 2016Q3

REPORT INFORMATION
  Report Type: Spontaneous
  Country: US (occurrence: US)
  Receive Date: 20150820
  Receipt Date: 20160825
  Transmission Date: 20161109
  Serious: Yes (Hospitalization)
  Sender: FDA-Public Use
  Company Number: US-ACTELION-A-NJ2015-122672

PATIENT
  Age: 59 Year
  Sex: Male

DRUGS (5)
  1. OPSUMIT [Suspect]
     Active Substance: MACITENTAN
     Indication: PULMONARY ARTERIAL HYPERTENSION
     Dosage: 10 MG, QD
     Route: 048
     Dates: start: 20150507
  2. DILTIAZEM. [Concomitant]
     Active Substance: DILTIAZEM
  3. TREPROSTINIL DIOLAMIN [Concomitant]
     Active Substance: TREPROSTINIL DIOLAMINE
  4. WARFARIN [Concomitant]
     Active Substance: WARFARIN
  5. RIOCIGUAT [Concomitant]
     Active Substance: RIOCIGUAT
     Dosage: 1 MG, UNK

REACTIONS (11)
  - International normalised ratio decreased [Unknown]
  - Constipation [Unknown]
  - Pulmonary arterial hypertension [Unknown]
  - Chronic obstructive pulmonary disease [Recovered/Resolved]
  - Atrial fibrillation [Unknown]
  - Respiratory failure [Recovered/Resolved]
  - Dizziness [Unknown]
  - Fatigue [Unknown]
  - Oxygen saturation decreased [Unknown]
  - Dyspnoea [Unknown]
  - Hypotension [Unknown]
